FAERS Safety Report 12296958 (Version 1)
Quarter: 2016Q2

REPORT INFORMATION
  Report Type: Other
  Country: IT (occurrence: IT)
  Receive Date: 20160422
  Receipt Date: 20160422
  Transmission Date: 20160815
  Serious: Yes (Hospitalization)
  Sender: FDA-Public Use
  Company Number: IT-MYLANLABS-2016M1016786

PATIENT

DRUGS (3)
  1. MUSCORIL [Suspect]
     Active Substance: THIOCOLCHICOSIDE
     Indication: MUSCULOSKELETAL PAIN
     Dosage: UNK UNK, QD
     Route: 048
  2. TORA-DOL [Suspect]
     Active Substance: KETOROLAC TROMETHAMINE
     Indication: MUSCULOSKELETAL PAIN
     Dosage: UNK UNK, QD
     Route: 048
  3. IBUPROFEN. [Suspect]
     Active Substance: IBUPROFEN
     Indication: MUSCULOSKELETAL PAIN
     Dosage: UNK UNK, QD
     Route: 048

REACTIONS (3)
  - Feeling hot [Unknown]
  - Paraesthesia [Unknown]
  - Headache [Unknown]

NARRATIVE: CASE EVENT DATE: 20160225
